FAERS Safety Report 21303639 (Version 1)
Quarter: 2022Q3

REPORT INFORMATION
  Report Type: Spontaneous
  Country: None (occurrence: US)
  Receive Date: 20220907
  Receipt Date: 20220907
  Transmission Date: 20221026
  Serious: No
  Sender: FDA-Public Use
  Company Number: US-Crown Laboratories, Inc.-2132629

PATIENT
  Sex: Male

DRUGS (1)
  1. ZEASORB AF [Suspect]
     Active Substance: MICONAZOLE NITRATE
     Route: 061
     Dates: start: 20220824

REACTIONS (1)
  - Blood pressure increased [None]
